FAERS Safety Report 5249606-0 (Version None)
Quarter: 2007Q1

REPORT INFORMATION
  Report Type: 
  Country: None (occurrence: None)
  Receive Date: 20070228
  Receipt Date: 20060417
  Transmission Date: 20070707
  Serious: No
  Sender: FDA-Public Use
  Company Number: US-GLAXOSMITHKLINE-A0601959A

PATIENT
  Age: 54 Year
  Sex: Male

DRUGS (15)
  1. IMITREX [Suspect]
     Indication: MIGRAINE
     Dosage: 1INJ AS REQUIRED
     Route: 058
     Dates: start: 20060404
  2. TOPAMAX [Concomitant]
  3. STARLIX [Concomitant]
  4. GLUCOPHAGE [Concomitant]
  5. OXYCONTIN [Concomitant]
  6. TOPROL-XL [Concomitant]
  7. UNIVASC [Concomitant]
  8. ZOCOR [Concomitant]
  9. ETODOLAC [Concomitant]
  10. GUAIFENEX PSE [Concomitant]
  11. FISH OIL [Concomitant]
  12. NITROSTAT [Concomitant]
  13. VITAMIN B-12 [Concomitant]
  14. ASPIRIN [Concomitant]
  15. MULTI-VITAMIN [Concomitant]

REACTIONS (2)
  - DRUG INEFFECTIVE [None]
  - PHARMACEUTICAL PRODUCT COMPLAINT [None]
